FAERS Safety Report 5454621-8 (Version None)
Quarter: 2007Q3

REPORT INFORMATION
  Report Type: 
  Country: None (occurrence: None)
  Receive Date: 20070917
  Receipt Date: 20070228
  Transmission Date: 20080115
  Serious: Yes (Other)
  Sender: FDA-Public Use
  Company Number: US-ASTRAZENECA-2006UW12301

PATIENT
  Sex: Female
  Weight: 64.1 kg

DRUGS (2)
  1. SEROQUEL [Suspect]
     Indication: DEPRESSION
     Dosage: 25 - 100 MG
     Route: 048
     Dates: start: 20020101, end: 20050101
  2. ZYPREXA [Suspect]

REACTIONS (3)
  - CONVULSION [None]
  - DIABETES MELLITUS [None]
  - PANCREATITIS [None]
